FAERS Safety Report 7062835-9 (Version None)
Quarter: 2010Q4

REPORT INFORMATION
  Report Type: 
  Country: None (occurrence: None)
  Receive Date: 20101026
  Receipt Date: 20100222
  Transmission Date: 20110411
  Serious: No
  Sender: FDA-Public Use
  Company Number: US-PFIZER INC-2010024499

PATIENT
  Sex: Female
  Weight: 72.121 kg

DRUGS (5)
  1. LIPITOR [Suspect]
     Indication: BLOOD CHOLESTEROL INCREASED
     Dosage: 10 MG, 1X/DAY
     Route: 048
     Dates: start: 20100101
  2. PAXIL [Concomitant]
     Indication: DEPRESSION
     Dosage: UNK
  3. PREVACID [Concomitant]
     Dosage: UNK
  4. ALLEGRA [Concomitant]
     Dosage: UNK
  5. NASONEX [Concomitant]
     Dosage: UNK

REACTIONS (1)
  - ANXIETY [None]
